FAERS Safety Report 6939713-6 (Version None)
Quarter: 2010Q3

REPORT INFORMATION
  Report Type: 
  Country: None (occurrence: None)
  Receive Date: 20100825
  Receipt Date: 20100817
  Transmission Date: 20110219
  Serious: No
  Sender: FDA-Public Use
  Company Number: US-BIOGENIDEC-2010BI024452

PATIENT
  Age: 67 Year
  Sex: Female

DRUGS (3)
  1. TYSABRI [Suspect]
     Indication: MULTIPLE SCLEROSIS
     Route: 042
     Dates: start: 20100309
  2. AVONEX [Concomitant]
     Route: 030
     Dates: start: 20020101
  3. AVONEX [Concomitant]
     Route: 030

REACTIONS (3)
  - INSOMNIA [None]
  - PRURITUS GENERALISED [None]
  - SKIN PAPILLOMA [None]
